FAERS Safety Report 8085739-1 (Version None)
Quarter: 2012Q1

REPORT INFORMATION
  Report Type: 
  Country: None (occurrence: None)
  Receive Date: 20120128
  Receipt Date: 20110606
  Transmission Date: 20120608
  Serious: No
  Sender: FDA-Public Use
  Company Number: US-ABBOTT-11P-163-0731110-00

PATIENT
  Sex: Male
  Weight: 127.12 kg

DRUGS (9)
  1. LOTREL [Concomitant]
     Indication: HYPERTENSION
  2. VITAMIN E [Concomitant]
     Indication: VITAMIN SUPPLEMENTATION
  3. METHOTREXATE [Concomitant]
     Indication: PSORIATIC ARTHROPATHY
     Dosage: USED IN PAST, THEN RESTART -JUN
  4. LIPITOR [Concomitant]
     Indication: BLOOD CHOLESTEROL INCREASED
  5. MULTI-VITAMINS [Concomitant]
     Indication: VITAMIN SUPPLEMENTATION
  6. TYLENOL W/ CODEINE NO. 3 [Concomitant]
     Indication: PAIN
  7. HUMIRA [Suspect]
     Indication: PSORIATIC ARTHROPATHY
     Dates: start: 20100701, end: 20110101
  8. MOBIC [Concomitant]
     Indication: PSORIATIC ARTHROPATHY
     Dates: start: 20090101
  9. HUMIRA [Suspect]
     Dates: start: 20110606

REACTIONS (2)
  - WOUND INFECTION STAPHYLOCOCCAL [None]
  - SCAB [None]
